FAERS Safety Report 8299655 (Version 4)
Quarter: 2012Q4

REPORT INFORMATION
  Report Type: Report from Study
  Country: JP (occurrence: JP)
  Receive Date: 20111219
  Receipt Date: 20121001
  Transmission Date: 20130627
  Serious: Yes (Death, Life-Threatening, Hospitalization, Other)
  Sender: FDA-Public Use
  Company Number: JP-CELGENEUS-087-50794-11121521

PATIENT
  Age: 73 Year
  Sex: Male
  Weight: 39 kg

DRUGS (38)
  1. VIDAZA [Suspect]
     Indication: MYELODYSPLASTIC SYNDROME
     Dosage: 75 milligram/sq. meter
     Route: 041
     Dates: start: 20110404, end: 20110412
  2. VIDAZA [Suspect]
     Dosage: 75 milligram/sq. meter
     Route: 041
     Dates: start: 20110510, end: 20110518
  3. VIDAZA [Suspect]
     Dosage: 75 milligram/sq. meter
     Route: 041
     Dates: start: 20110622, end: 20110630
  4. VIDAZA [Suspect]
     Dosage: 75 milligram/sq. meter
     Route: 041
     Dates: start: 20110801, end: 20110809
  5. VIDAZA [Suspect]
     Dosage: 75 milligram/sq. meter
     Route: 041
     Dates: start: 20110906, end: 20110914
  6. VIDAZA [Suspect]
     Dosage: 75 milligram/sq. meter
     Route: 041
     Dates: start: 20111107, end: 20111115
  7. VIDAZA [Suspect]
     Dosage: 75 milligram/sq. meter
     Route: 041
     Dates: start: 20111212, end: 20111220
  8. VIDAZA [Suspect]
     Dosage: 75 milligram/sq. meter
     Route: 041
     Dates: start: 20120228, end: 20120307
  9. MUCOSTA [Concomitant]
     Indication: DRUG USE FOR UNKNOWN INDICATION
     Dosage: 300 Milligram
     Route: 048
  10. PREDONINE [Concomitant]
     Indication: DRUG USE FOR UNKNOWN INDICATION
     Dosage: 5 Milligram
     Route: 048
     Dates: end: 20120325
  11. ALESION [Concomitant]
     Indication: DRUG USE FOR UNKNOWN INDICATION
     Dosage: 20 Milligram
     Route: 048
  12. CEREKINON [Concomitant]
     Indication: DRUG USE FOR UNKNOWN INDICATION
     Dosage: 300 Milligram
     Route: 048
     Dates: start: 20110411, end: 20120325
  13. BIOFERMIN R [Concomitant]
     Indication: DRUG USE FOR UNKNOWN INDICATION
     Dosage: 2 Gram
     Route: 048
     Dates: end: 20110425
  14. ZOVIRAX [Concomitant]
     Indication: DRUG USE FOR UNKNOWN INDICATION
     Route: 065
     Dates: start: 20110414
  15. HYALEIN [Concomitant]
     Indication: DRUG USE FOR UNKNOWN INDICATION
     Route: 065
     Dates: start: 20110414
  16. LEVOFLOXACIN HYDRATE [Concomitant]
     Indication: DRUG USE FOR UNKNOWN INDICATION
     Dosage: 300 Milligram
     Route: 048
     Dates: start: 20110419, end: 20110425
  17. FLUCONAZOLE [Concomitant]
     Indication: DRUG USE FOR UNKNOWN INDICATION
     Dosage: 100 Milligram
     Route: 048
     Dates: start: 20110419, end: 20110425
  18. PURSENNID [Concomitant]
     Indication: DRUG USE FOR UNKNOWN INDICATION
     Route: 048
     Dates: start: 20110523
  19. HUMULIN R [Concomitant]
     Indication: DRUG USE FOR UNKNOWN INDICATION
     Route: 058
     Dates: end: 20110421
  20. HUMULIN N [Concomitant]
     Indication: DRUG USE FOR UNKNOWN INDICATION
     Route: 058
     Dates: start: 20110422, end: 20110425
  21. NOVOLIN N [Concomitant]
     Indication: DRUG USE FOR UNKNOWN INDICATION
     Route: 058
     Dates: start: 20110426, end: 20110620
  22. GLYCYRON [Concomitant]
     Indication: LIVER DISORDER
     Route: 048
     Dates: start: 20110630, end: 20120325
  23. GLYCYRON [Concomitant]
     Indication: AST INCREASED
  24. GLYCYRON [Concomitant]
     Indication: ALT INCREASED
  25. LANTUS [Concomitant]
     Indication: DRUG USE FOR UNKNOWN INDICATION
     Route: 058
     Dates: start: 20110621, end: 20120322
  26. MAGLAX [Concomitant]
     Indication: DRUG USE FOR UNKNOWN INDICATION
     Dosage: 1 Gram
     Route: 048
     Dates: start: 20111213, end: 20120325
  27. FLOMOX [Concomitant]
     Indication: DRUG USE FOR UNKNOWN INDICATION
     Dosage: 300 Milligram
     Route: 048
     Dates: start: 20120120, end: 20120126
  28. CALONAL [Concomitant]
     Indication: DRUG USE FOR UNKNOWN INDICATION
     Dosage: 400 Milligram
     Route: 048
  29. AZUCURENIN S [Concomitant]
     Indication: DRUG USE FOR UNKNOWN INDICATION
     Dosage: 1.5 Gram
     Route: 048
     Dates: start: 20120302, end: 20120311
  30. NAIXAN [Concomitant]
     Indication: DRUG USE FOR UNKNOWN INDICATION
     Dosage: 300 Milligram
     Route: 048
     Dates: start: 20120319, end: 20120325
  31. CEFEPIME DIHYDROCHLORIDE HYDRATE [Concomitant]
     Indication: DRUG USE FOR UNKNOWN INDICATION
     Dosage: 4 Gram
     Route: 041
     Dates: start: 20111214, end: 20111221
  32. CEFEPIME DIHYDROCHLORIDE HYDRATE [Concomitant]
     Dosage: 2-4g
     Route: 041
     Dates: start: 20120226, end: 20120304
  33. SOLITA-T NO.1 [Concomitant]
     Indication: DRUG USE FOR UNKNOWN INDICATION
     Dosage: 500 milliliter
     Route: 041
     Dates: start: 20120319, end: 20120325
  34. PERAPRIN [Concomitant]
     Indication: DRUG USE FOR UNKNOWN INDICATION
     Dosage: 10 Milligram
     Route: 041
     Dates: start: 20120323, end: 20120323
  35. BISOLVON [Concomitant]
     Indication: DRUG USE FOR UNKNOWN INDICATION
     Dosage: 4 Milligram
     Route: 041
     Dates: start: 20120323, end: 20120325
  36. MORPHINE HYDROCHLORIDE HYDRATE [Concomitant]
     Indication: DRUG USE FOR UNKNOWN INDICATION
     Dosage: 50 Milligram
     Route: 041
     Dates: start: 20120324, end: 20120324
  37. SOLITA-T NO.3 [Concomitant]
     Indication: DRUG USE FOR UNKNOWN INDICATION
     Dosage: 500 milliliter
     Route: 041
     Dates: start: 20120324, end: 20120325
  38. SULBACILLIN [Concomitant]
     Indication: DRUG USE FOR UNKNOWN INDICATION
     Dosage: 1.5 Gram
     Route: 041
     Dates: start: 20120324, end: 20120325

REACTIONS (16)
  - White blood cell count increased [Fatal]
  - Blast cell count increased [Fatal]
  - White blood cell count increased [Recovered/Resolved]
  - Aspartate aminotransferase increased [Not Recovered/Not Resolved]
  - Alanine aminotransferase increased [Recovered/Resolved]
  - Aspartate aminotransferase increased [Recovered/Resolved]
  - Alanine aminotransferase increased [Recovered/Resolved]
  - Pyrexia [Recovered/Resolved]
  - Anal abscess [Recovering/Resolving]
  - Platelet count decreased [Recovering/Resolving]
  - Constipation [Recovered/Resolved]
  - Pyrexia [Recovered/Resolved]
  - Pyrexia [Recovering/Resolving]
  - Nausea [Recovered/Resolved]
  - Eyelid oedema [Recovering/Resolving]
  - Bone pain [Recovered/Resolved]
